FAERS Safety Report 4416427-8 (Version None)
Quarter: 2004Q3

REPORT INFORMATION
  Report Type: 
  Country: None (occurrence: None)
  Receive Date: 20040802
  Receipt Date: 20040716
  Transmission Date: 20050211
  Serious: Yes (Other)
  Sender: FDA-Public Use
  Company Number: 2004223850JP

PATIENT
  Sex: 0

DRUGS (1)
  1. DOSTINEX [Suspect]
     Indication: ACROMEGALY
     Dosage: ORAL
     Route: 048

REACTIONS (1)
  - CEREBROSPINAL FLUID LEAKAGE [None]
